FAERS Safety Report 24390134 (Version 1)
Quarter: 2024Q4

REPORT INFORMATION
  Report Type: Spontaneous
  Country: US (occurrence: US)
  Receive Date: 20241003
  Receipt Date: 20241003
  Transmission Date: 20250114
  Serious: Yes (Other)
  Sender: ALKEM
  Company Number: US-ALKEM LABORATORIES LIMITED-US-ALKEM-2024-22373

PATIENT
  Age: 58 Year
  Sex: Female

DRUGS (6)
  1. TRIAMCINOLONE ACETONIDE [Suspect]
     Active Substance: TRIAMCINOLONE ACETONIDE
     Indication: Alopecia areata
     Dosage: UNK (9 CUBIC CENTIMETER), 2.5 MG/CUBIC CENTIMETER) (INJECTION)
     Route: 026
  2. TRIAMCINOLONE ACETONIDE [Suspect]
     Active Substance: TRIAMCINOLONE ACETONIDE
     Dosage: UNK (4 TREATMENT SESSIONS FOR 4 CONSECUTIVE MONTHS) (INJECTION)
     Route: 026
  3. TRIAMCINOLONE ACETONIDE [Suspect]
     Active Substance: TRIAMCINOLONE ACETONIDE
     Dosage: UNK (ADJUSTED DOWN TO 4 CUBIC CENTIMETER)
     Route: 026
  4. TRIAMCINOLONE ACETONIDE [Suspect]
     Active Substance: TRIAMCINOLONE ACETONIDE
     Dosage: UNK (10 MILLIGRAM OVER 4 MILLILITER) (5 TREATMENTS OF REDUCED DOSE RECEIVED) (INJECTION)
     Route: 026
  5. CLOBETASOL [Concomitant]
     Active Substance: CLOBETASOL
     Indication: Alopecia areata
     Dosage: UNK
     Route: 061
  6. MINOXIDIL [Concomitant]
     Active Substance: MINOXIDIL
     Indication: Alopecia areata
     Dosage: UNK
     Route: 065

REACTIONS (1)
  - Central serous chorioretinopathy [Recovered/Resolved]
